FAERS Safety Report 4703960-4 (Version None)
Quarter: 2005Q2

REPORT INFORMATION
  Report Type: 
  Country: None (occurrence: None)
  Receive Date: 20050630
  Receipt Date: 20050311
  Transmission Date: 20051028
  Serious: Yes (Hospitalization, Other)
  Sender: FDA-Public Use
  Company Number: US-MERCK-0503USA02612

PATIENT
  Age: 54 Year
  Sex: Male
  Weight: 61 kg

DRUGS (12)
  1. VIOXX [Suspect]
     Indication: ARTHRITIS
     Route: 048
     Dates: start: 20030501, end: 20041001
  2. NEXIUM [Concomitant]
     Indication: GASTROOESOPHAGEAL REFLUX DISEASE
     Route: 048
  3. NOVANTRONE [Concomitant]
     Indication: MULTIPLE SCLEROSIS
     Route: 065
  4. METAGLIP [Concomitant]
     Indication: HYPOGLYCAEMIA
     Route: 065
  5. ZOLOFT [Concomitant]
     Route: 065
  6. PREVACID [Concomitant]
     Indication: GASTROOESOPHAGEAL REFLUX DISEASE
     Route: 065
  7. LIPITOR [Concomitant]
     Indication: BLOOD CHOLESTEROL INCREASED
     Route: 065
     Dates: start: 20030101, end: 20040101
  8. NEURONTIN [Concomitant]
     Indication: NEUROPATHIC PAIN
     Route: 065
     Dates: start: 20010101, end: 20040101
  9. FLEXERIL [Concomitant]
     Indication: MUSCLE RELAXANT THERAPY
     Route: 065
  10. ASPIRIN [Concomitant]
     Indication: ANTIPLATELET THERAPY
     Route: 065
     Dates: start: 20030101
  11. ASPIRIN [Concomitant]
     Route: 065
     Dates: start: 20040101
  12. AVONEX [Concomitant]
     Indication: MULTIPLE SCLEROSIS
     Route: 065

REACTIONS (10)
  - ABASIA [None]
  - ANAL TINEA [None]
  - CEREBROVASCULAR ACCIDENT [None]
  - LOBAR PNEUMONIA [None]
  - NEUTROPENIA [None]
  - OEDEMA PERIPHERAL [None]
  - PARAESTHESIA [None]
  - RHINITIS ALLERGIC [None]
  - TINEA CRURIS [None]
  - TINEA PEDIS [None]
